FAERS Safety Report 25878847 (Version 1)
Quarter: 2025Q4

REPORT INFORMATION
  Report Type: Spontaneous
  Country: US (occurrence: US)
  Receive Date: 20251003
  Receipt Date: 20251003
  Transmission Date: 20260118
  Serious: No
  Sender: DR REDDYS
  Company Number: US-RDY-USA/2025/09/014970

PATIENT
  Age: 54 Year
  Sex: Male

DRUGS (3)
  1. ISOTRETINOIN [Suspect]
     Active Substance: ISOTRETINOIN
     Indication: Alopecia scarring
  2. ISOTRETINOIN [Suspect]
     Active Substance: ISOTRETINOIN
  3. NAFTIN [Concomitant]
     Active Substance: NAFTIFINE HYDROCHLORIDE
     Indication: Alopecia scarring
     Dosage: 1%
     Route: 061

REACTIONS (1)
  - Drug ineffective for unapproved indication [Recovered/Resolved]
